FAERS Safety Report 5282949-3 (Version None)
Quarter: 2007Q2

REPORT INFORMATION
  Report Type: 
  Country: None (occurrence: None)
  Receive Date: 20070402
  Receipt Date: 20070320
  Transmission Date: 20071010
  Serious: Yes (Hospitalization, Other)
  Sender: FDA-Public Use
  Company Number: PHHO2007BR05094

PATIENT
  Age: 70 Year
  Sex: Female

DRUGS (3)
  1. DIOVAN HCT [Suspect]
     Indication: HYPERTENSION
     Dosage: 160/25MG DAILY
     Route: 048
  2. SELOZOK [Concomitant]
  3. SUSTRATE [Concomitant]

REACTIONS (10)
  - AGGRESSION [None]
  - ANOREXIA [None]
  - ARRHYTHMIA [None]
  - ASTHENIA [None]
  - HAEMATOCRIT DECREASED [None]
  - HYPOGLYCAEMIA [None]
  - MALAISE [None]
  - URINARY TRACT INFECTION [None]
  - VOMITING [None]
  - WEIGHT DECREASED [None]
